APPROVED DRUG PRODUCT: DEXMETHYLPHENIDATE HYDROCHLORIDE
Active Ingredient: DEXMETHYLPHENIDATE HYDROCHLORIDE
Strength: 30MG
Dosage Form/Route: CAPSULE, EXTENDED RELEASE;ORAL
Application: A202580 | Product #001
Applicant: AUROLIFE PHARMA LLC
Approved: Aug 28, 2013 | RLD: No | RS: No | Type: DISCN